FAERS Safety Report 9361896 (Version 1)
Quarter: 2013Q2

REPORT INFORMATION
  Report Type: Spontaneous
  Country: US (occurrence: US)
  Receive Date: 20130621
  Receipt Date: 20130621
  Transmission Date: 20140414
  Serious: No
  Sender: FDA-Public Use
  Company Number: US-009507513-1306USA008977

PATIENT
  Sex: Female

DRUGS (2)
  1. PEPCID [Suspect]
     Indication: FLATULENCE
     Dosage: UNK
     Route: 048
     Dates: start: 20130610
  2. GASTROINTESTINAL PREPARATIONS (UNSPECIFIED) [Concomitant]
     Dosage: UNK
     Dates: start: 2013

REACTIONS (1)
  - Drug ineffective [Unknown]
